FAERS Safety Report 15282742 (Version 1)
Quarter: 2018Q3

REPORT INFORMATION
  Report Type: Spontaneous
  Country: GB (occurrence: GB)
  Receive Date: 20180816
  Receipt Date: 20180816
  Transmission Date: 20181010
  Serious: Yes (Disabling)
  Sender: FDA-Public Use
  Company Number: GB-TEVA-2018-GB-941644

PATIENT
  Age: 63 Year
  Sex: Male

DRUGS (1)
  1. NITROFURANTOIN. [Suspect]
     Active Substance: NITROFURANTOIN
     Indication: URINARY TRACT INFECTION
     Route: 065
     Dates: start: 20180711

REACTIONS (3)
  - Gingival pain [Unknown]
  - Headache [Unknown]
  - Oral herpes [Unknown]

NARRATIVE: CASE EVENT DATE: 20180711
